FAERS Safety Report 18223183 (Version 2)
Quarter: 2020Q4

REPORT INFORMATION
  Report Type: Spontaneous
  Country: US (occurrence: US)
  Receive Date: 20200902
  Receipt Date: 20201007
  Transmission Date: 20210113
  Serious: Yes (Other)
  Sender: FDA-Public Use
  Company Number: US-INDIVIOR US-INDV-126130-2020

PATIENT
  Age: 29 Year
  Sex: Female

DRUGS (1)
  1. BUPRENORPHINE TABLET [Suspect]
     Active Substance: BUPRENORPHINE
     Indication: DRUG DEPENDENCE
     Dosage: UNK
     Route: 058

REACTIONS (6)
  - Substance abuse [Unknown]
  - Intentional product use issue [Unknown]
  - Nephrogenic systemic fibrosis [Unknown]
  - Type 1 diabetes mellitus [Unknown]
  - Chronic kidney disease [Unknown]
  - Morphoea [Unknown]
